FAERS Safety Report 9833141 (Version 2)
Quarter: 2014Q1

REPORT INFORMATION
  Report Type: Spontaneous
  Country: US (occurrence: US)
  Receive Date: 20140121
  Receipt Date: 20140121
  Transmission Date: 20141002
  Serious: Yes (Hospitalization)
  Sender: FDA-Public Use
  Company Number: US-B.I. PHARMACEUTICALS,INC./RIDGEFIELD-2013-BI-24035BP

PATIENT
  Sex: Female
  Weight: 67.13 kg

DRUGS (6)
  1. PRADAXA [Suspect]
     Indication: ATRIAL FIBRILLATION
     Dosage: 300 MG
     Route: 048
     Dates: start: 20110701, end: 20130303
  2. PANTOPRAZOLE [Concomitant]
  3. MULTAQ [Concomitant]
  4. PRAVASTATIN [Concomitant]
  5. VALSARTAN [Concomitant]
  6. ASPIRIN [Concomitant]

REACTIONS (4)
  - Lower gastrointestinal haemorrhage [Unknown]
  - Haemorrhagic anaemia [Unknown]
  - Renal failure acute [Unknown]
  - Coagulopathy [Unknown]
